FAERS Safety Report 5554382-8 (Version None)
Quarter: 2007Q4

REPORT INFORMATION
  Report Type: 
  Country: None (occurrence: None)
  Receive Date: 20071213
  Receipt Date: 20070726
  Transmission Date: 20080405
  Serious: No
  Sender: FDA-Public Use
  Company Number: US-AMGEN-KDL234929

PATIENT
  Sex: Male

DRUGS (1)
  1. ENBREL [Suspect]
     Indication: MIXED CONNECTIVE TISSUE DISEASE
     Route: 058

REACTIONS (1)
  - MIXED CONNECTIVE TISSUE DISEASE [None]
